FAERS Safety Report 7548939-2 (Version None)
Quarter: 2011Q2

REPORT INFORMATION
  Report Type: 
  Country: None (occurrence: None)
  Receive Date: 20110608
  Receipt Date: 20110525
  Transmission Date: 20111010
  Serious: Yes (Other)
  Sender: FDA-Public Use
  Company Number: DSA_46839_2011

PATIENT
  Sex: Male

DRUGS (3)
  1. DRUG USED IN DIABETES [Concomitant]
  2. ANTIHYPERTENSIVES [Concomitant]
  3. DILTIAZEM HYDROCHLORIDE [Suspect]
     Indication: PRODUCT USED FOR UNKNOWN INDICATION
     Dosage: 200 MG, ORAL
     Route: 048

REACTIONS (2)
  - BLOOD POTASSIUM INCREASED [None]
  - RENAL IMPAIRMENT [None]
